FAERS Safety Report 6647154-4 (Version None)
Quarter: 2010Q1

REPORT INFORMATION
  Report Type: 
  Country: None (occurrence: None)
  Receive Date: 20100323
  Receipt Date: 20100315
  Transmission Date: 20100710
  Serious: Yes (Hospitalization)
  Sender: FDA-Public Use
  Company Number: PHHY2010FR16488

PATIENT
  Sex: Male

DRUGS (6)
  1. CIBADREX [Suspect]
     Indication: HYPERTENSION
     Dosage: 10 MG, QD
     Route: 048
     Dates: start: 20100112, end: 20100115
  2. TRIMETAZIDINE [Concomitant]
     Dosage: 3 DF DAILY
     Route: 048
  3. LANSOPRAZOLE [Concomitant]
     Dosage: 30 MG, QD
     Route: 048
  4. DERINOX [Concomitant]
  5. ZOPICLONE [Concomitant]
     Indication: INSOMNIA
     Dosage: 1 DF, QD
     Route: 048
  6. ACETAMINOPHEN AND CODEINE PHOSPHATE [Concomitant]
     Indication: PAIN
     Dosage: UNK
     Route: 048

REACTIONS (4)
  - ABDOMINAL PAIN UPPER [None]
  - HYPONATRAEMIA [None]
  - PYELOCALIECTASIS [None]
  - RENAL FAILURE ACUTE [None]
